FAERS Safety Report 26187681 (Version 1)
Quarter: 2025Q4

REPORT INFORMATION
  Report Type: Report from Study
  Country: US (occurrence: US)
  Receive Date: 20251222
  Receipt Date: 20251222
  Transmission Date: 20260118
  Serious: Yes (Other)
  Sender: OTSUKA
  Company Number: US-OTSUKA-2025_030830

PATIENT
  Age: 41 Year
  Sex: Female

DRUGS (5)
  1. ARIPIPRAZOLE [Suspect]
     Active Substance: ARIPIPRAZOLE
     Indication: Bipolar disorder
     Dosage: UNK (800 MG OR 500 MG UNSURE)
     Route: 065
  2. ARIPIPRAZOLE [Suspect]
     Active Substance: ARIPIPRAZOLE
  3. ARIPIPRAZOLE [Suspect]
     Active Substance: ARIPIPRAZOLE
  4. ARIPIPRAZOLE [Suspect]
     Active Substance: ARIPIPRAZOLE
  5. ABILIFY [Suspect]
     Active Substance: ARIPIPRAZOLE
     Indication: Bipolar disorder
     Dosage: UNK
     Route: 061

REACTIONS (12)
  - Shock [Unknown]
  - Discomfort [Recovering/Resolving]
  - Injection site haemorrhage [Recovering/Resolving]
  - Irritability [Unknown]
  - Injection site pain [Recovering/Resolving]
  - Hyperhidrosis [Unknown]
  - Fatigue [Recovering/Resolving]
  - Tremor [Not Recovered/Not Resolved]
  - Muscle twitching [Not Recovered/Not Resolved]
  - Weight increased [Not Recovered/Not Resolved]
  - Drug ineffective [Unknown]
  - Drug monitoring procedure not performed [Not Recovered/Not Resolved]

NARRATIVE: CASE EVENT DATE: 20150101
